FAERS Safety Report 20307366 (Version 1)
Quarter: 2022Q1

REPORT INFORMATION
  Report Type: Spontaneous
  Country: US (occurrence: US)
  Receive Date: 20220107
  Receipt Date: 20220107
  Transmission Date: 20220423
  Serious: No
  Sender: FDA-Public Use
  Company Number: US-TARO-2021TAR00070

PATIENT

DRUGS (1)
  1. TRIAMCINOLONE ACETONIDE [Suspect]
     Active Substance: TRIAMCINOLONE ACETONIDE
     Indication: Skin irritation
     Dosage: TOPICALLY ON THE SCALP
     Route: 061

REACTIONS (2)
  - Hair growth abnormal [Recovered/Resolved]
  - Therapeutic response unexpected [Unknown]
